APPROVED DRUG PRODUCT: EMROSI
Active Ingredient: MINOCYCLINE HYDROCHLORIDE
Strength: EQ 40MG BASE
Dosage Form/Route: CAPSULE, EXTENDED RELEASE;ORAL
Application: N219015 | Product #001
Applicant: JOURNEY MEDICAL CORP
Approved: Nov 1, 2024 | RLD: Yes | RS: Yes | Type: RX

PATENTS:
Patent 11364212 | Expires: Jan 7, 2039
Patent 11191740 | Expires: Jan 7, 2039
Patent 10905664 | Expires: Jan 7, 2039

EXCLUSIVITY:
Code: NP | Date: Nov 1, 2027